FAERS Safety Report 21997353 (Version 1)
Quarter: 2023Q1

REPORT INFORMATION
  Report Type: Spontaneous
  Country: US (occurrence: US)
  Receive Date: 20230216
  Receipt Date: 20230216
  Transmission Date: 20230417
  Serious: No
  Sender: FDA-Public Use
  Company Number: US-drreddys-LIT/USA/23/0159930

PATIENT
  Age: 67 Year
  Sex: Male

DRUGS (5)
  1. LORAZEPAM [Suspect]
     Active Substance: LORAZEPAM
     Indication: Catatonia
  2. LORAZEPAM [Suspect]
     Active Substance: LORAZEPAM
     Dosage: DOSE INCREASED
  3. DIVALPROEX SODIUM [Suspect]
     Active Substance: DIVALPROEX SODIUM
     Indication: Catatonia
  4. ZOLPIDEM [Suspect]
     Active Substance: ZOLPIDEM TARTRATE
     Indication: Catatonia
  5. LEXAPRO [Suspect]
     Active Substance: ESCITALOPRAM OXALATE
     Indication: Catatonia

REACTIONS (2)
  - Somnolence [Unknown]
  - Drug ineffective for unapproved indication [Unknown]
